FAERS Safety Report 6722373-7 (Version None)
Quarter: 2010Q2

REPORT INFORMATION
  Report Type: 
  Country: None (occurrence: None)
  Receive Date: 20100512
  Receipt Date: 20100511
  Transmission Date: 20101027
  Serious: Yes (Other)
  Sender: FDA-Public Use
  Company Number: US-BRISTOL-MYERS SQUIBB COMPANY-15099518

PATIENT

DRUGS (1)
  1. IXEMPRA KIT [Suspect]
     Dates: start: 20100503

REACTIONS (1)
  - PANCREATITIS [None]
